FAERS Safety Report 10042483 (Version 1)
Quarter: 2014Q1

REPORT INFORMATION
  Report Type: Report from Study
  Country: GB (occurrence: GB)
  Receive Date: 20140327
  Receipt Date: 20140327
  Transmission Date: 20141002
  Serious: Yes (Hospitalization)
  Sender: FDA-Public Use
  Company Number: GB-UCBSA-114971

PATIENT
  Age: 73 Year
  Sex: Female
  Weight: 116 kg

DRUGS (7)
  1. CIMZIA [Suspect]
     Indication: RHEUMATOID ARTHRITIS
     Dosage: UNKNOWN DOSE
  2. BISOPROLOL [Concomitant]
     Route: 048
  3. CODRYDAMOL [Concomitant]
     Dosage: 10/500MG PRN
     Route: 048
  4. FOLIC ACID [Concomitant]
     Route: 048
  5. LEVOTHYROXINE [Concomitant]
     Route: 048
  6. METHOTREXATE [Concomitant]
     Route: 048
  7. OMEPRAZOLE [Concomitant]
     Route: 048

REACTIONS (1)
  - Bladder cancer [Recovered/Resolved with Sequelae]
